FAERS Safety Report 7293621-2 (Version None)
Quarter: 2011Q1

REPORT INFORMATION
  Report Type: 
  Country: None (occurrence: None)
  Receive Date: 20110215
  Receipt Date: 20110209
  Transmission Date: 20110831
  Serious: Yes (Other)
  Sender: FDA-Public Use
  Company Number: A0892070A

PATIENT
  Sex: Male

DRUGS (3)
  1. DILANTIN [Suspect]
     Route: 065
  2. VOTRIENT [Suspect]
     Dosage: 800MG PER DAY
     Route: 048
     Dates: start: 20101103
  3. LYRICA [Concomitant]

REACTIONS (12)
  - INCREASED APPETITE [None]
  - FATIGUE [None]
  - INFLUENZA LIKE ILLNESS [None]
  - DRUG INTERACTION [None]
  - DIZZINESS [None]
  - HYPERTENSION [None]
  - INSOMNIA [None]
  - BALANCE DISORDER [None]
  - CHILLS [None]
  - PAIN [None]
  - ASTHENIA [None]
  - PYREXIA [None]
